FAERS Safety Report 5463054-X (Version None)
Quarter: 2007Q3

REPORT INFORMATION
  Report Type: 
  Country: None (occurrence: None)
  Receive Date: 20070918
  Receipt Date: 20070918
  Transmission Date: 20080115
  Serious: Yes (Other)
  Sender: FDA-Public Use
  Company Number: None

PATIENT
  Age: 22 Year
  Sex: Female
  Weight: 56.6996 kg

DRUGS (1)
  1. CIPRO [Suspect]
     Indication: CYSTITIS
     Dosage: 500MG 2X DAILY PO
     Route: 048
     Dates: start: 20070913, end: 20070916

REACTIONS (4)
  - CHEST PAIN [None]
  - DEPRESSION [None]
  - SUICIDAL IDEATION [None]
  - TACHYCARDIA [None]
